FAERS Safety Report 4803958-1 (Version None)
Quarter: 2005Q3

REPORT INFORMATION
  Report Type: 
  Country: None (occurrence: None)
  Receive Date: 20050920
  Receipt Date: 20050808
  Transmission Date: 20060218
  Serious: No
  Sender: FDA-Public Use
  Company Number: US-YAMANOUCHI-YPA20050334

PATIENT
  Age: 67 Year
  Sex: Female

DRUGS (5)
  1. VESICARE [Suspect]
     Indication: HYPERTONIC BLADDER
     Dosage: 10 MG PO
     Route: 048
     Dates: start: 20050627, end: 20050629
  2. VESICARE [Suspect]
     Indication: HYPERTONIC BLADDER
     Dosage: MG PO
     Route: 048
     Dates: start: 20050101
  3. ZOCOR [Concomitant]
  4. THORAZINE [Concomitant]
  5. ZYRTEC [Concomitant]

REACTIONS (1)
  - LYMPHADENOPATHY [None]
